FAERS Safety Report 6339658-9 (Version None)
Quarter: 2009Q3

REPORT INFORMATION
  Report Type: 
  Country: None (occurrence: None)
  Receive Date: 20090903
  Receipt Date: 20090825
  Transmission Date: 20100115
  Serious: Yes (Hospitalization)
  Sender: FDA-Public Use
  Company Number: CA-AVENTIS-200918494GDDC

PATIENT
  Age: 52 Year
  Sex: Female
  Weight: 109 kg

DRUGS (7)
  1. LANTUS [Suspect]
     Route: 058
     Dates: start: 20080901, end: 20090601
  2. ROSIGLITAZONE [Suspect]
     Route: 048
     Dates: end: 20090324
  3. METFORMIN HCL [Concomitant]
     Route: 048
     Dates: end: 20090601
  4. GLICLAZIDE [Concomitant]
     Route: 048
     Dates: start: 20090101, end: 20090601
  5. ACCURETIC [Concomitant]
     Route: 048
     Dates: end: 20090601
  6. ASPIRIN [Concomitant]
     Route: 048
  7. LIPITOR [Concomitant]
     Route: 048

REACTIONS (4)
  - ARTHRALGIA [None]
  - CHEST PAIN [None]
  - OEDEMA [None]
  - WEIGHT INCREASED [None]
